FAERS Safety Report 8583807-9 (Version None)
Quarter: 2012Q3

REPORT INFORMATION
  Report Type: 
  Country: None (occurrence: None)
  Receive Date: 20120810
  Receipt Date: 20120730
  Transmission Date: 20120928
  Serious: Yes (Other)
  Sender: FDA-Public Use
  Company Number: JP-MSD-1207JPN009560

PATIENT

DRUGS (1)
  1. FAMOTIDINE [Suspect]
     Dosage: UNK MG, UNK
     Route: 048

REACTIONS (1)
  - DRUG RASH WITH EOSINOPHILIA AND SYSTEMIC SYMPTOMS [None]
